FAERS Safety Report 7382998-5 (Version None)
Quarter: 2011Q1

REPORT INFORMATION
  Report Type: 
  Country: None (occurrence: None)
  Receive Date: 20110330
  Receipt Date: 20101006
  Transmission Date: 20110831
  Serious: Yes (Hospitalization, Other)
  Sender: FDA-Public Use
  Company Number: US-BAYER-201023610NA

PATIENT
  Sex: Female
  Weight: 68.636 kg

DRUGS (5)
  1. ASCORBIC ACID [Concomitant]
  2. PHENERGAN HCL [Concomitant]
     Indication: NAUSEA
  3. YAZ [Suspect]
     Indication: CONTRACEPTION
     Route: 048
     Dates: start: 20081208, end: 20090513
  4. ALEVE [Concomitant]
  5. DARVOCET [Concomitant]
     Indication: PAIN
     Dosage: N-100 AS NEEDED

REACTIONS (7)
  - DEEP VEIN THROMBOSIS [None]
  - PELVIC VENOUS THROMBOSIS [None]
  - HAEMOLYSIS [None]
  - HAEMATURIA [None]
  - ANAEMIA [None]
  - CHEST DISCOMFORT [None]
  - PULMONARY MICROEMBOLI [None]
